FAERS Safety Report 24234183 (Version 1)
Quarter: 2024Q3

REPORT INFORMATION
  Report Type: Spontaneous
  Country: FI (occurrence: FI)
  Receive Date: 20240821
  Receipt Date: 20240821
  Transmission Date: 20241016
  Serious: Yes (Disabling)
  Sender: ABBVIE
  Company Number: None

PATIENT
  Age: 17 Year
  Sex: Male

DRUGS (9)
  1. CIPRALEX [Suspect]
     Active Substance: ESCITALOPRAM OXALATE
     Indication: Psychotic disorder
     Route: 065
  2. CIPRALEX [Suspect]
     Active Substance: ESCITALOPRAM OXALATE
     Indication: Psychotic disorder
     Dosage: 10-20 MG IN THE MORNINGS /10-20 MG IN THE MORNINGS ONCE A DAY (DOSAGE VARIED)
     Route: 048
     Dates: start: 2010, end: 2010
  3. QUETIAPINE FUMARATE [Suspect]
     Active Substance: QUETIAPINE FUMARATE
     Indication: Depression
     Route: 065
  4. QUETIAPINE FUMARATE [Suspect]
     Active Substance: QUETIAPINE FUMARATE
     Indication: Depression
     Dosage: 25 - 100 MG IN THE EVENINGS /25 - 100 MG ONCE A DAY, DOSAGE VARIED
     Route: 048
     Dates: start: 2010, end: 2010
  5. RISPERDAL [Suspect]
     Active Substance: RISPERIDONE
     Indication: Psychotic disorder
     Dosage: 0.5 - 1 MG IN THE EVENINGS /0.5 - 1 MG IN THE EVENINGS ONCE A DAY, DOSE VARIED
     Route: 048
     Dates: start: 2010, end: 2010
  6. RISPERDAL [Suspect]
     Active Substance: RISPERIDONE
     Indication: Psychotic disorder
     Route: 065
  7. IMOVANE [Concomitant]
     Active Substance: ZOPICLONE
     Indication: Initial insomnia
     Dosage: 1/2 - 1 TABLET IN THE EVENINGS AS NECESSARY
     Route: 048
     Dates: start: 2010, end: 2010
  8. ABILIFY [Suspect]
     Active Substance: ARIPIPRAZOLE
     Indication: Obsessive-compulsive disorder
     Dosage: 7.5 MG IN THE EVENING ONCE A DAY
     Route: 048
     Dates: start: 2010, end: 2010
  9. ABILIFY [Suspect]
     Active Substance: ARIPIPRAZOLE
     Indication: Obsessive-compulsive disorder
     Route: 065

REACTIONS (3)
  - Anhedonia [Recovered/Resolved with Sequelae]
  - Product administered to patient of inappropriate age [Unknown]
  - Sexual dysfunction [Recovered/Resolved with Sequelae]

NARRATIVE: CASE EVENT DATE: 20100101
